FAERS Safety Report 9405986 (Version 3)
Quarter: 2013Q3

REPORT INFORMATION
  Report Type: Spontaneous
  Country: US (occurrence: US)
  Receive Date: 20130717
  Receipt Date: 20130905
  Transmission Date: 20140515
  Serious: Yes (Other)
  Sender: FDA-Public Use
  Company Number: US-PFIZER INC-2013207901

PATIENT
  Age: 68 Year
  Sex: Female

DRUGS (10)
  1. PRISTIQ [Suspect]
     Indication: ANXIETY
     Dosage: 50 MG, 1X/DAY
     Route: 048
     Dates: start: 20130710, end: 20130717
  2. PRISTIQ [Suspect]
     Indication: DEPRESSION
  3. RELAFEN [Concomitant]
     Dosage: UNK, 1X/DAY
  4. LEVOTHYROXINE [Concomitant]
     Dosage: UNK, 1X/DAY
  5. VITAMIN D3 [Concomitant]
     Dosage: UNK, 1X/DAY
  6. INTERFERON [Concomitant]
     Dosage: UNK, (3X WEEK)
  7. ACETYLSALICYLIC ACID [Concomitant]
     Dosage: UNK, 1X/DAY
  8. CALCIUM [Concomitant]
     Dosage: UNK
  9. VITAMIN C [Concomitant]
     Dosage: UNK
  10. VITAMIN E [Concomitant]
     Dosage: UNK, 1X/DAY

REACTIONS (4)
  - Circumstance or information capable of leading to medication error [Unknown]
  - Cognitive disorder [Unknown]
  - Suicidal behaviour [Unknown]
  - Depression [Unknown]
